FAERS Safety Report 5026210-0 (Version None)
Quarter: 2006Q2

REPORT INFORMATION
  Report Type: 
  Country: None (occurrence: None)
  Receive Date: 20060608
  Receipt Date: 20060605
  Transmission Date: 20061013
  Serious: Yes (Other)
  Sender: FDA-Public Use
  Company Number: 200610743BYL

PATIENT
  Age: 23 Year
  Sex: Male

DRUGS (9)
  1. CIPROFLOXACIN [Suspect]
     Indication: ABSCESS
     Dosage: SEE IMAGE
     Route: 042
     Dates: start: 20060524, end: 20060531
  2. CIPROFLOXACIN [Suspect]
     Indication: GASTROINTESTINAL INFECTION
     Dosage: SEE IMAGE
     Route: 042
     Dates: start: 20060524, end: 20060531
  3. CIPROFLOXACIN [Suspect]
     Indication: ABSCESS
     Dosage: SEE IMAGE
     Route: 042
     Dates: start: 20060601, end: 20060603
  4. CIPROFLOXACIN [Suspect]
     Indication: GASTROINTESTINAL INFECTION
     Dosage: SEE IMAGE
     Route: 042
     Dates: start: 20060601, end: 20060603
  5. NORVASC [Concomitant]
  6. RENAGEL [Concomitant]
  7. NU-LOTAN [Concomitant]
  8. INTRALIPID 10% [Concomitant]
  9. MEROPENEM TRIHYDRATE [Concomitant]

REACTIONS (1)
  - HYPOGLYCAEMIA [None]
